FAERS Safety Report 15802106 (Version 1)
Quarter: 2019Q1

REPORT INFORMATION
  Report Type: Other
  Country: BE (occurrence: BE)
  Receive Date: 20190109
  Receipt Date: 20190109
  Transmission Date: 20190417
  Serious: Yes (Other)
  Sender: FDA-Public Use
  Company Number: BE-APOTEX-2018AP028592

PATIENT
  Age: 69 Year
  Sex: Female
  Weight: 61.86 kg

DRUGS (3)
  1. FURADANTINE [Suspect]
     Active Substance: NITROFURANTOIN
     Indication: URINARY TRACT INFECTION
     Dosage: 300 MG, QD (ONCE A DAY)
     Route: 048
     Dates: start: 20181008, end: 20181010
  2. ACETAMINOPHEN. [Suspect]
     Active Substance: ACETAMINOPHEN
     Indication: PRODUCT USED FOR UNKNOWN INDICATION
     Dosage: 1 G JUSQU^? 6 X LE 10/10/18
     Route: 048
  3. PANTOMED                           /00178901/ [Concomitant]
     Active Substance: DEXPANTHENOL
     Indication: PRODUCT USED FOR UNKNOWN INDICATION
     Dosage: UNK
     Route: 048
     Dates: start: 201801

REACTIONS (5)
  - Fatigue [Recovered/Resolved]
  - Lymphopenia [Recovered/Resolved]
  - Hepatic enzyme increased [Recovering/Resolving]
  - Rash macular [Recovered/Resolved]
  - Thrombocytopenia [Recovered/Resolved]

NARRATIVE: CASE EVENT DATE: 20181010
